FAERS Safety Report 25721135 (Version 1)
Quarter: 2025Q3

REPORT INFORMATION
  Report Type: Spontaneous
  Country: US (occurrence: US)
  Receive Date: 20250825
  Receipt Date: 20250825
  Transmission Date: 20251020
  Serious: Yes (Hospitalization, Other)
  Sender: GLAXOSMITHKLINE
  Company Number: US-GSK-US2025GSK107186

PATIENT
  Sex: Male

DRUGS (2)
  1. DOSTARLIMAB [Suspect]
     Active Substance: DOSTARLIMAB
     Indication: Colorectal cancer
     Dosage: 500 MG, 3W, FOUR CYCLES
  2. DOSTARLIMAB [Suspect]
     Active Substance: DOSTARLIMAB
     Indication: Rectal adenocarcinoma

REACTIONS (1)
  - Cytomegalovirus hepatitis [Recovered/Resolved]
